FAERS Safety Report 13747998 (Version 1)
Quarter: 2017Q3

REPORT INFORMATION
  Report Type: Spontaneous
  Country: MX (occurrence: MX)
  Receive Date: 20170713
  Receipt Date: 20170713
  Transmission Date: 20171127
  Serious: Yes (Death, Hospitalization)
  Sender: FDA-Public Use
  Company Number: MX-ACTELION-A-CH2017-156344

PATIENT
  Age: 85 Year
  Sex: Male
  Weight: 90 kg

DRUGS (11)
  1. MIDODRINE HYDROCHLORIDE. [Concomitant]
     Active Substance: MIDODRINE HYDROCHLORIDE
  2. LOSEC [Concomitant]
     Active Substance: OMEPRAZOLE
  3. PREGABALIN. [Concomitant]
     Active Substance: PREGABALIN
  4. PREDNISONE. [Concomitant]
     Active Substance: PREDNISONE
  5. DULOXETINE. [Concomitant]
     Active Substance: DULOXETINE
  6. ALDACTONE [Concomitant]
     Active Substance: SPIRONOLACTONE
  7. FUROSEMIDE. [Concomitant]
     Active Substance: FUROSEMIDE
  8. PRUCALOPRIDE [Concomitant]
     Active Substance: PRUCALOPRIDE
  9. EUTIROX [Concomitant]
     Active Substance: LEVOTHYROXINE SODIUM
  10. ZEPENDO [Suspect]
     Active Substance: MACITENTAN
     Indication: PULMONARY ARTERIAL HYPERTENSION
     Dosage: 10 MG, QD
     Route: 048
     Dates: start: 20151216, end: 20170625
  11. IPRATROPIUM [Concomitant]
     Active Substance: IPRATROPIUM

REACTIONS (2)
  - Gastrointestinal haemorrhage [Fatal]
  - Concomitant disease aggravated [Fatal]

NARRATIVE: CASE EVENT DATE: 20170625
